FAERS Safety Report 10652319 (Version 2)
Quarter: 2015Q1

REPORT INFORMATION
  Report Type: Spontaneous
  Country: US (occurrence: US)
  Receive Date: 20141215
  Receipt Date: 20150311
  Transmission Date: 20150720
  Serious: Yes (Hospitalization)
  Sender: FDA-Public Use
  Company Number: US-B.I. PHARMACEUTICALS,INC./RIDGEFIELD-2014-BI-59727BP

PATIENT
  Age: 46 Year
  Sex: Female
  Weight: 113.4 kg

DRUGS (12)
  1. FISH OIL [Concomitant]
     Active Substance: FISH OIL
     Indication: CARDIOVASCULAR EVENT PROPHYLAXIS
     Dosage: 1000 MG
     Route: 048
     Dates: start: 201312
  2. ADDERALL [Concomitant]
     Active Substance: AMPHETAMINE ASPARTATE\AMPHETAMINE SULFATE\DEXTROAMPHETAMINE SACCHARATE\DEXTROAMPHETAMINE SULFATE
     Indication: ATTENTION DEFICIT/HYPERACTIVITY DISORDER
     Dosage: 40 MG
     Route: 048
     Dates: start: 2012
  3. SPIRONOLACTONE. [Concomitant]
     Active Substance: SPIRONOLACTONE
     Indication: PERIPHERAL SWELLING
     Dosage: 25 MG
     Route: 048
     Dates: start: 201408
  4. AMBIEN [Concomitant]
     Active Substance: ZOLPIDEM TARTRATE
     Indication: INSOMNIA
     Dosage: 10 MG
     Route: 048
     Dates: start: 201410
  5. DYMISTA [Concomitant]
     Active Substance: AZELASTINE HYDROCHLORIDE\FLUTICASONE PROPIONATE
     Indication: PHARYNGEAL DISORDER
     Dosage: FORMULATION: NASAL SPRAY; STRENGTH: 1 SQUIRT; DAILY DOSE: 4 SQUIRTS
     Route: 045
     Dates: start: 2012
  6. FLUOCINOLONE ACETONIDE. [Concomitant]
     Active Substance: FLUOCINOLONE ACETONIDE
     Indication: FUNGAL INFECTION
     Dosage: STRENGTH: 0.01%; DAILY DOSE: 0.02%
     Route: 061
     Dates: start: 201410
  7. COMBIVENT [Suspect]
     Active Substance: ALBUTEROL SULFATE\IPRATROPIUM BROMIDE
     Dosage: STRENGTH: 20 MCG / 100 MCG; DAILY DOSE: 80MCG / 400MCG
     Route: 055
     Dates: start: 2011
  8. XANAX [Concomitant]
     Active Substance: ALPRAZOLAM
     Indication: ANXIETY
     Dosage: 6 MG
     Route: 048
     Dates: start: 2011
  9. FLUOCINONIDE. [Concomitant]
     Active Substance: FLUOCINONIDE
     Indication: FUNGAL INFECTION
     Dosage: STRENGTH: 0.05%; DAILY DOSE: 0.1%
     Route: 061
     Dates: start: 201410
  10. TUDORZA PRESSAIR [Concomitant]
     Active Substance: ACLIDINIUM BROMIDE
     Indication: CHRONIC OBSTRUCTIVE PULMONARY DISEASE
     Dosage: 800 MG
     Route: 055
     Dates: start: 2012
  11. COMBIVENT [Suspect]
     Active Substance: ALBUTEROL SULFATE\IPRATROPIUM BROMIDE
     Indication: CHRONIC OBSTRUCTIVE PULMONARY DISEASE
     Dosage: STRENGTH: 18 MCG / 103 MCG;
     Route: 055
     Dates: start: 2005, end: 2011
  12. SPIRONOLACTONE. [Concomitant]
     Active Substance: SPIRONOLACTONE
     Indication: MUSCLE SPASMS

REACTIONS (7)
  - Cough [Not Recovered/Not Resolved]
  - Drug effect decreased [Not Recovered/Not Resolved]
  - Weight decreased [Not Recovered/Not Resolved]
  - Cardiac failure congestive [Recovered/Resolved]
  - Lung infection [Not Recovered/Not Resolved]
  - Dyspnoea [Not Recovered/Not Resolved]
  - Product quality issue [Recovered/Resolved]

NARRATIVE: CASE EVENT DATE: 2011
